FAERS Safety Report 20531828 (Version 1)
Quarter: 2022Q1

REPORT INFORMATION
  Report Type: Spontaneous
  Country: US (occurrence: None)
  Receive Date: 20220228
  Receipt Date: 20220228
  Transmission Date: 20220423
  Serious: No
  Sender: FDA-Public Use
  Company Number: None

PATIENT
  Sex: Female
  Weight: 85.50 kg

DRUGS (6)
  1. AKYNZEO [Suspect]
     Active Substance: NETUPITANT\PALONOSETRON HYDROCHLORIDE
     Dosage: OTHER FREQUENCY : QW 3 OF 4 WEEKS;?
     Route: 048
  2. ELIQUIS [Concomitant]
     Active Substance: APIXABAN
  3. VITAMIN D [Concomitant]
     Active Substance: VITAMIN D NOS
  4. ATIVAN [Concomitant]
     Active Substance: LORAZEPAM
  5. MAGNESIUM [Concomitant]
     Active Substance: MAGNESIUM
  6. PROCHLORPERAZINE [Concomitant]
     Active Substance: PROCHLORPERAZINE

REACTIONS (2)
  - Small intestinal obstruction [None]
  - Metastases to peritoneum [None]
